FAERS Safety Report 9356993 (Version 1)
Quarter: 2013Q2

REPORT INFORMATION
  Report Type: Spontaneous
  Country: FR (occurrence: FR)
  Receive Date: 20130620
  Receipt Date: 20130620
  Transmission Date: 20140414
  Serious: Yes (Other)
  Sender: FDA-Public Use
  Company Number: FR-GE HEALTHCARE MEDICAL DIAGNOSTICS-VISP-NO-1306S-0693

PATIENT
  Age: 48 Year
  Sex: Male

DRUGS (9)
  1. VISIPAQUE [Suspect]
     Indication: PRODUCT USED FOR UNKNOWN INDICATION
     Route: 042
     Dates: start: 20130418, end: 20130418
  2. VISIPAQUE [Suspect]
     Indication: DIAGNOSTIC PROCEDURE
  3. PLAVIX [Concomitant]
     Dates: start: 20130408, end: 20130419
  4. KARDEGIC [Concomitant]
     Dates: start: 20130408
  5. ASPEGIC [Concomitant]
     Dates: start: 201207
  6. TAHOR [Concomitant]
     Dates: start: 201207, end: 20130420
  7. SECTRAL [Concomitant]
     Dates: start: 20130408
  8. HEPARIN [Concomitant]
     Dates: start: 20130418
  9. ISOPTINE [Concomitant]
     Dates: start: 20130418

REACTIONS (2)
  - Rash maculo-papular [Recovering/Resolving]
  - Pruritus [Recovering/Resolving]
